FAERS Safety Report 24266997 (Version 2)
Quarter: 2024Q3

REPORT INFORMATION
  Report Type: Spontaneous
  Country: FR (occurrence: FR)
  Receive Date: 20240830
  Receipt Date: 20240930
  Transmission Date: 20241016
  Serious: Yes (Hospitalization, Congenital Anomaly)
  Sender: TEVA
  Company Number: None

PATIENT
  Age: 1 Day
  Sex: Male
  Weight: 3.415 kg

DRUGS (5)
  1. RISPERIDONE [Suspect]
     Active Substance: RISPERIDONE
     Indication: Product used for unknown indication
     Route: 064
     Dates: start: 20230831, end: 20230831
  2. SERTRALINE [Suspect]
     Active Substance: SERTRALINE HYDROCHLORIDE
     Indication: Product used for unknown indication
     Dosage: SERTRALINE HYDROCHLORIDE
     Route: 064
     Dates: end: 20231008
  3. DIAZEPAM [Suspect]
     Active Substance: DIAZEPAM
     Indication: Product used for unknown indication
     Route: 064
     Dates: end: 20230905
  4. OXAZEPAM [Suspect]
     Active Substance: OXAZEPAM
     Indication: Product used for unknown indication
     Route: 064
     Dates: end: 20230924
  5. LOXAPINE [Suspect]
     Active Substance: LOXAPINE
     Indication: Product used for unknown indication
     Dosage: LOXAPINE BASE
     Route: 064
     Dates: end: 20230905

REACTIONS (3)
  - Hypospadias [Not Recovered/Not Resolved]
  - Premature baby [Recovered/Resolved]
  - Maternal exposure during pregnancy [Recovered/Resolved]

NARRATIVE: CASE EVENT DATE: 20230504
